FAERS Safety Report 13524077 (Version 1)
Quarter: 2017Q2

REPORT INFORMATION
  Report Type: Report from Study
  Country: GB (occurrence: GB)
  Receive Date: 20170508
  Receipt Date: 20170508
  Transmission Date: 20170830
  Serious: Yes (Hospitalization, Other)
  Sender: FDA-Public Use
  Company Number: GB-AMGEN-GBRCT2017068370

PATIENT
  Age: 68 Year
  Sex: Male

DRUGS (3)
  1. CARFILZOMIB [Suspect]
     Active Substance: CARFILZOMIB
     Indication: PLASMA CELL MYELOMA
     Dosage: UNK UNK, PER CHEMO REGIM
     Route: 065
  2. LENALIDOMIDE [Suspect]
     Active Substance: LENALIDOMIDE
     Indication: PLASMA CELL MYELOMA
     Dosage: 5 MG, PER CHEMO REGIM
     Route: 048
     Dates: start: 20130513
  3. VORINOSTAT [Concomitant]
     Active Substance: VORINOSTAT
     Indication: PLASMA CELL MYELOMA
     Dosage: 200 MG, PER CHEMO REGIM
     Route: 048
     Dates: start: 20130513

REACTIONS (2)
  - Hyponatraemia [Recovered/Resolved with Sequelae]
  - Small cell lung cancer [Recovered/Resolved with Sequelae]

NARRATIVE: CASE EVENT DATE: 20161104
